FAERS Safety Report 7146721-1 (Version None)
Quarter: 2010Q4

REPORT INFORMATION
  Report Type: 
  Country: None (occurrence: None)
  Receive Date: 20101208
  Receipt Date: 20101202
  Transmission Date: 20110411
  Serious: Yes (Hospitalization, Other)
  Sender: FDA-Public Use
  Company Number: FR-ABBOTT-10P-056-0689492-00

PATIENT
  Age: 50 Year
  Sex: Male

DRUGS (7)
  1. NORVIR [Suspect]
     Indication: ACQUIRED IMMUNODEFICIENCY SYNDROME
     Route: 048
     Dates: start: 20100915, end: 20100923
  2. REYATAZ [Suspect]
     Indication: ACQUIRED IMMUNODEFICIENCY SYNDROME
     Route: 048
     Dates: start: 20100915, end: 20100923
  3. KIVEXA [Suspect]
     Indication: ACQUIRED IMMUNODEFICIENCY SYNDROME
     Route: 048
     Dates: start: 20100915, end: 20100923
  4. ANSATIPINE [Suspect]
     Indication: TUBERCULOSIS
     Route: 048
     Dates: start: 20100824, end: 20100923
  5. PIRILENE [Suspect]
     Indication: PRODUCT USED FOR UNKNOWN INDICATION
     Route: 048
     Dates: start: 20100824, end: 20100913
  6. RIMIFON [Concomitant]
     Indication: TUBERCULOSIS
     Route: 048
     Dates: start: 20100824
  7. MYAMBUTOL [Concomitant]
     Indication: TUBERCULOSIS
     Route: 048
     Dates: start: 20100824

REACTIONS (8)
  - ANGIOEDEMA [None]
  - DYSPHAGIA [None]
  - PHARYNGEAL OEDEMA [None]
  - PRURITUS [None]
  - RASH [None]
  - RASH MACULO-PAPULAR [None]
  - SALIVARY HYPERSECRETION [None]
  - URTICARIA [None]
